FAERS Safety Report 5148054-1 (Version None)
Quarter: 2006Q4

REPORT INFORMATION
  Report Type: 
  Country: None (occurrence: None)
  Receive Date: 20061110
  Receipt Date: 20061108
  Transmission Date: 20070319
  Serious: Yes (Other)
  Sender: FDA-Public Use
  Company Number: AR-BRISTOL-MYERS SQUIBB COMPANY-13573100

PATIENT
  Age: 55 Year
  Sex: Male

DRUGS (2)
  1. APROVEL [Suspect]
     Indication: HYPERTENSION
     Route: 048
  2. SILDENAFIL [Interacting]
     Indication: ERECTILE DYSFUNCTION
     Route: 048
     Dates: start: 20060101

REACTIONS (3)
  - DRUG INTERACTION [None]
  - FEELING ABNORMAL [None]
  - PETIT MAL EPILEPSY [None]
